FAERS Safety Report 5833814-1 (Version None)
Quarter: 2008Q3

REPORT INFORMATION
  Report Type: 
  Country: None (occurrence: None)
  Receive Date: 20080801
  Receipt Date: 20080801
  Transmission Date: 20090109
  Serious: No
  Sender: FDA-Public Use
  Company Number: None

PATIENT
  Age: 76 Year
  Sex: Male

DRUGS (1)
  1. ATROPINE [Suspect]
     Indication: EYE DISORDER
     Dosage: 1 DROPS EVERY DAY EYE
     Dates: start: 20080707, end: 20080714

REACTIONS (2)
  - ECZEMA [None]
  - FLUSHING [None]
